FAERS Safety Report 18922969 (Version 2)
Quarter: 2021Q1

REPORT INFORMATION
  Report Type: Spontaneous
  Country: IL (occurrence: IL)
  Receive Date: 20210222
  Receipt Date: 20210316
  Transmission Date: 20210420
  Serious: Yes (Death, Other)
  Sender: FDA-Public Use
  Company Number: IL-AMGEN-ISRSP2021025135

PATIENT

DRUGS (3)
  1. CARFILZOMIB [Suspect]
     Active Substance: CARFILZOMIB
     Indication: ACUTE GRAFT VERSUS HOST DISEASE
     Dosage: UNK
     Route: 065
  2. METHOTREXATE. [Suspect]
     Active Substance: METHOTREXATE
     Indication: ACUTE GRAFT VERSUS HOST DISEASE
     Dosage: UNK
     Route: 065
  3. CYCLOSPORINE. [Suspect]
     Active Substance: CYCLOSPORINE
     Indication: ACUTE GRAFT VERSUS HOST DISEASE
     Dosage: UNK
     Route: 065

REACTIONS (6)
  - Toxicity to various agents [Unknown]
  - Disease recurrence [Unknown]
  - Off label use [Unknown]
  - Chronic graft versus host disease [Unknown]
  - Multiple organ dysfunction syndrome [Fatal]
  - Acute graft versus host disease [Fatal]
